FAERS Safety Report 8164265-5 (Version None)
Quarter: 2012Q1

REPORT INFORMATION
  Report Type: 
  Country: None (occurrence: None)
  Receive Date: 20120224
  Receipt Date: 20111021
  Transmission Date: 20120608
  Serious: No
  Sender: FDA-Public Use
  Company Number: US-ASTRAZENECA-2011SE63929

PATIENT

DRUGS (3)
  1. VIMOVO [Suspect]
     Indication: ARTHRITIS
     Route: 048
  2. PRILOSEC [Suspect]
     Indication: GASTROOESOPHAGEAL REFLUX DISEASE
     Route: 048
  3. VIMOVO [Suspect]
     Indication: NECK PAIN
     Route: 048

REACTIONS (3)
  - DRUG INTERACTION [None]
  - NECK PAIN [None]
  - ARTHRITIS [None]
